FAERS Safety Report 10897463 (Version 1)
Quarter: 2015Q1

REPORT INFORMATION
  Report Type: Spontaneous
  Country: US (occurrence: US)
  Receive Date: 20150309
  Receipt Date: 20150309
  Transmission Date: 20150721
  Serious: No
  Sender: FDA-Public Use
  Company Number: US-AMGEN-USASP2015020389

PATIENT
  Sex: Female

DRUGS (1)
  1. ENBREL [Suspect]
     Active Substance: ETANERCEPT
     Indication: PSORIASIS
     Dosage: 50 MG, UNK
     Route: 065

REACTIONS (6)
  - Injection site erythema [Unknown]
  - Skin reaction [Unknown]
  - Injection site swelling [Unknown]
  - Fatigue [Unknown]
  - Skin swelling [Unknown]
  - Erythema [Unknown]
